FAERS Safety Report 5335833-0 (Version None)
Quarter: 2007Q2

REPORT INFORMATION
  Report Type: 
  Country: None (occurrence: None)
  Receive Date: 20070320
  Receipt Date: 20060731
  Transmission Date: 20071010
  Serious: Yes (Hospitalization)
  Sender: FDA-Public Use
  Company Number: 146813USA

PATIENT
  Age: 56 Year
  Sex: Female

DRUGS (8)
  1. CEPHALEXIN [Suspect]
     Dosage: (500 MG)
     Dates: start: 20060720, end: 20060727
  2. VERAPAMIL [Concomitant]
  3. LANSOPRAZOLE [Concomitant]
  4. METOPROLOL SUCCINATE [Concomitant]
  5. SERTRALINE HYDROCHLORIDE [Concomitant]
  6. AVALIDE [Concomitant]
  7. LORATADINE [Concomitant]
  8. HUMALOG [Concomitant]

REACTIONS (7)
  - FLUID RETENTION [None]
  - FOOD ALLERGY [None]
  - GENERALISED OEDEMA [None]
  - HYPERSENSITIVITY [None]
  - NAUSEA [None]
  - SWELLING [None]
  - THROAT TIGHTNESS [None]
